FAERS Safety Report 5973668-6 (Version None)
Quarter: 2008Q4

REPORT INFORMATION
  Report Type: 
  Country: None (occurrence: None)
  Receive Date: 20081201
  Receipt Date: 20081119
  Transmission Date: 20090506
  Serious: Yes (Other)
  Sender: FDA-Public Use
  Company Number: US-ELI_LILLY_AND_COMPANY-US200810003334

PATIENT
  Sex: Female

DRUGS (7)
  1. CYMBALTA [Suspect]
     Indication: FIBROMYALGIA
     Dosage: 30 MG, DAILY (1/D)
     Dates: start: 20080902
  2. CYMBALTA [Suspect]
     Dosage: 60 MG, DAILY (1/D)
     Route: 048
     Dates: start: 20080901
  3. ELAVIL [Concomitant]
     Indication: FIBROMYALGIA
     Dosage: 50 MG, OTHER
     Route: 048
     Dates: start: 20070101
  4. CELEBREX [Concomitant]
     Indication: ARTHRITIS
     Dosage: 200 MG, DAILY (1/D)
     Route: 048
     Dates: start: 20070101
  5. LIPITOR [Concomitant]
     Indication: LIPIDS INCREASED
     Dosage: 10 MG, DAILY (1/D)
     Route: 048
     Dates: start: 20070101
  6. CLARITIN [Concomitant]
     Dosage: UNK, DAILY (1/D)
     Route: 048
  7. ACTONEL [Concomitant]
     Indication: OSTEOPOROSIS
     Dosage: 35 MG, UNK
     Dates: start: 20070101

REACTIONS (3)
  - ANGIOEDEMA [None]
  - DIARRHOEA [None]
  - HYPERSENSITIVITY [None]
